FAERS Safety Report 6096158-1 (Version None)
Quarter: 2009Q1

REPORT INFORMATION
  Report Type: 
  Country: None (occurrence: None)
  Receive Date: 20090227
  Receipt Date: 20080917
  Transmission Date: 20090719
  Serious: No
  Sender: FDA-Public Use
  Company Number: A0747966A

PATIENT
  Age: 44 Year
  Sex: Female

DRUGS (2)
  1. LAMICTAL [Suspect]
     Dosage: 25MG PER DAY
     Route: 048
     Dates: start: 20080811, end: 20080910
  2. LYRICA [Concomitant]

REACTIONS (4)
  - DRY THROAT [None]
  - DYSPHAGIA [None]
  - HEADACHE [None]
  - HYPERTENSION [None]
